FAERS Safety Report 4427905-X (Version None)
Quarter: 2004Q3

REPORT INFORMATION
  Report Type: 
  Country: None (occurrence: None)
  Receive Date: 20040813
  Receipt Date: 20040730
  Transmission Date: 20050211
  Serious: Yes (Death)
  Sender: FDA-Public Use
  Company Number: USA-2002-0002700

PATIENT
  Age: 39 Year
  Sex: Male

DRUGS (8)
  1. OXYCONTIN [Suspect]
     Indication: PAIN
     Dates: end: 20010914
  2. GABAPENTIN [Concomitant]
  3. TRAZODONE HCL [Concomitant]
  4. SOMA [Concomitant]
  5. HYOSCYAMINE SULFATE AND PHENOBARBITAL [Concomitant]
  6. CLONAZEPAM [Concomitant]
  7. REMERON [Concomitant]
  8. DIVALPROEX SODIUM [Concomitant]

REACTIONS (13)
  - ASTHENIA [None]
  - BACK PAIN [None]
  - BLOOD URINE [None]
  - FEELING ABNORMAL [None]
  - HYPOAESTHESIA [None]
  - MIGRAINE [None]
  - MIGRATION OF IMPLANT [None]
  - NECK PAIN [None]
  - PAIN IN EXTREMITY [None]
  - PROSTATITIS [None]
  - PROTEINURIA [None]
  - RENAL DISORDER [None]
  - URINARY INCONTINENCE [None]
